FAERS Safety Report 17743344 (Version 1)
Quarter: 2020Q2

REPORT INFORMATION
  Report Type: Spontaneous
  Country: DE (occurrence: DE)
  Receive Date: 20200504
  Receipt Date: 20200504
  Transmission Date: 20200714
  Serious: Yes (Other)
  Sender: FDA-Public Use
  Company Number: DE-UCBSA-2020017148

PATIENT
  Age: 49 Year
  Sex: Female
  Weight: 50 kg

DRUGS (2)
  1. NEUPRO [Suspect]
     Active Substance: ROTIGOTINE
     Indication: RESTLESS LEGS SYNDROME
     Dosage: 2 MILLIGRAM
     Dates: start: 2020
  2. NEUPRO [Suspect]
     Active Substance: ROTIGOTINE
     Dosage: 1 MILLIGRAM

REACTIONS (6)
  - Insomnia [Unknown]
  - Off label use [Unknown]
  - Nausea [Unknown]
  - Restless legs syndrome [Unknown]
  - Menstruation irregular [Unknown]
  - Swelling [Unknown]

NARRATIVE: CASE EVENT DATE: 2020
